FAERS Safety Report 9175161 (Version 1)
Quarter: 2013Q1

REPORT INFORMATION
  Report Type: Spontaneous
  Country: US (occurrence: US)
  Receive Date: 20130320
  Receipt Date: 20130320
  Transmission Date: 20140127
  Serious: Yes (Hospitalization)
  Sender: FDA-Public Use
  Company Number: US-BAYER-2013-033342

PATIENT
  Age: 32 Year
  Sex: Female

DRUGS (8)
  1. YAZ [Suspect]
  2. PERCOCET [Concomitant]
     Indication: PAIN
     Dosage: UNK, AS NEEDED
  3. LEXAPRO [Concomitant]
     Dosage: 10 MG, QD FOR 30 DAYS
     Route: 048
  4. VICODIN [Concomitant]
     Indication: PAIN
     Dosage: 5-500 MG, 1 TABLET EVERY 6 HOURS AS NEEDED FOR 30 DAYS
  5. MOTRIN [Concomitant]
  6. ANTIBIOTICS [Concomitant]
     Route: 042
  7. IBUPROFEN [Concomitant]
     Indication: PAIN MANAGEMENT
  8. IMITREX [Concomitant]
     Route: 048

REACTIONS (1)
  - Ovarian vein thrombosis [None]
